FAERS Safety Report 13560610 (Version 1)
Quarter: 2017Q2

REPORT INFORMATION
  Report Type: Spontaneous
  Country: US (occurrence: US)
  Receive Date: 20170518
  Receipt Date: 20170518
  Transmission Date: 20170830
  Serious: No
  Sender: FDA-Public Use
  Company Number: US-ROCHE-661648

PATIENT
  Age: 79 Year
  Sex: Female

DRUGS (6)
  1. TENORMIN [Concomitant]
     Active Substance: ATENOLOL
     Dosage: DRUG NAME: TINORMIN
     Route: 065
  2. ALEVE [Suspect]
     Active Substance: NAPROXEN SODIUM
     Route: 048
  3. ALEVE [Suspect]
     Active Substance: NAPROXEN SODIUM
     Indication: ARTHRITIS
     Route: 048
  4. ALTACE [Concomitant]
     Active Substance: RAMIPRIL
     Route: 065
  5. ACETYLSALICYLIC ACID [Concomitant]
     Active Substance: ASPIRIN
     Dosage: DRUG NAME: BABY ASPIRIN
     Route: 065
  6. ALEVE [Suspect]
     Active Substance: NAPROXEN SODIUM
     Indication: ARTHRITIS
     Dosage: FORM: LIQUID GEL
     Route: 048

REACTIONS (2)
  - Blood pressure systolic increased [Not Recovered/Not Resolved]
  - Blood pressure increased [Not Recovered/Not Resolved]

NARRATIVE: CASE EVENT DATE: 200904
